FAERS Safety Report 4627889-5 (Version None)
Quarter: 2005Q2

REPORT INFORMATION
  Report Type: 
  Country: None (occurrence: None)
  Receive Date: 20050404
  Receipt Date: 20050404
  Transmission Date: 20051028
  Serious: Yes (Hospitalization)
  Sender: FDA-Public Use
  Company Number: None

PATIENT
  Sex: Female

DRUGS (1)
  1. ROBITUSSION DM 100MG/10MG WYETH LOT #A67947 [Suspect]
     Indication: NASOPHARYNGITIS
     Dosage: 2 CAPFUL -TS ONCE ORAL
     Route: 048
     Dates: start: 20050320, end: 20050320

REACTIONS (2)
  - BLOOD PRESSURE SYSTOLIC INCREASED [None]
  - HEADACHE [None]
